FAERS Safety Report 24784774 (Version 1)
Quarter: 2024Q4

REPORT INFORMATION
  Report Type: Spontaneous
  Country: US (occurrence: US)
  Receive Date: 20241228
  Receipt Date: 20241228
  Transmission Date: 20250114
  Serious: Yes (Other)
  Sender: AUROBINDO
  Company Number: US-MLMSERVICE-20241209-PI284910-00307-1

PATIENT
  Age: 36 Year
  Sex: Female

DRUGS (1)
  1. TAMOXIFEN [Suspect]
     Active Substance: TAMOXIFEN
     Indication: Breast cancer
     Dosage: FOR SEVEN YEARS
     Route: 065

REACTIONS (3)
  - Ovarian hyperstimulation syndrome [Recovered/Resolved]
  - Oligomenorrhoea [Recovered/Resolved]
  - Ovarian cyst [Recovered/Resolved]
